FAERS Safety Report 4763723-0 (Version None)
Quarter: 2005Q3

REPORT INFORMATION
  Report Type: 
  Country: None (occurrence: None)
  Receive Date: 20050908
  Receipt Date: 20050830
  Transmission Date: 20060218
  Serious: Yes (Other)
  Sender: FDA-Public Use
  Company Number: AU-ROCHE-416036

PATIENT
  Sex: Male

DRUGS (5)
  1. ROCEPHIN [Suspect]
     Indication: WOUND INFECTION
     Route: 042
     Dates: end: 20050731
  2. METFORMIN [Concomitant]
  3. IMDUR [Concomitant]
     Indication: ANGINA PECTORIS
  4. LIPITOR [Concomitant]
  5. RANITIDINE [Concomitant]

REACTIONS (7)
  - CHEST PAIN [None]
  - DYSPHAGIA [None]
  - LYMPHOEDEMA [None]
  - PAIN [None]
  - SWELLING FACE [None]
  - URTICARIA [None]
  - URTICARIA GENERALISED [None]
